FAERS Safety Report 5254761-2 (Version None)
Quarter: 2007Q1

REPORT INFORMATION
  Report Type: 
  Country: None (occurrence: None)
  Receive Date: 20070305
  Receipt Date: 20070226
  Transmission Date: 20070707
  Serious: Yes (Death, Hospitalization)
  Sender: FDA-Public Use
  Company Number: SE-JNJFOC-20070206327

PATIENT
  Age: 6 Decade
  Sex: Female

DRUGS (10)
  1. REMICADE [Suspect]
     Indication: FISTULA
     Route: 042
  2. REMICADE [Suspect]
     Indication: CROHN'S DISEASE
     Route: 042
  3. AZATHIOPRINE SODIUM [Suspect]
     Indication: CROHN'S DISEASE
     Route: 048
  4. FOLACIN [Concomitant]
     Route: 048
  5. FRAGMIN [Concomitant]
     Route: 058
  6. DIAMOX [Concomitant]
     Route: 048
  7. ALVEDON [Concomitant]
     Route: 048
  8. DUROFERON [Concomitant]
     Route: 048
  9. EMGESAN [Concomitant]
     Route: 048
  10. DEXOFEN [Concomitant]
     Route: 048

REACTIONS (5)
  - BENIGN INTRACRANIAL HYPERTENSION [None]
  - BILE DUCT CANCER [None]
  - DEEP VEIN THROMBOSIS [None]
  - METASTASES TO LIVER [None]
  - PULMONARY EMBOLISM [None]
